FAERS Safety Report 5725027-9 (Version None)
Quarter: 2008Q2

REPORT INFORMATION
  Report Type: 
  Country: None (occurrence: None)
  Receive Date: 20080429
  Receipt Date: 20080425
  Transmission Date: 20081010
  Serious: Yes (Disabling)
  Sender: FDA-Public Use
  Company Number: 027020

PATIENT
  Age: 47 Year
  Sex: Female

DRUGS (2)
  1. TAMOXIFEN CITRATE [Suspect]
     Indication: BREAST CANCER
     Dosage: 20 MG, QD, ORAL
     Route: 048
     Dates: start: 20060303
  2. TRIPTORELIN(TRIPTORELIN) [Suspect]
     Indication: BREAST CANCER
     Dosage: 3.75 MG, QD, INTRAMUSCULAR
     Route: 030
     Dates: start: 20060316, end: 20080317

REACTIONS (1)
  - DYSPAREUNIA [None]
